FAERS Safety Report 8382552-2 (Version None)
Quarter: 2012Q2

REPORT INFORMATION
  Report Type: 
  Country: None (occurrence: None)
  Receive Date: 20120524
  Receipt Date: 20120515
  Transmission Date: 20120825
  Serious: Yes (Hospitalization, Other)
  Sender: FDA-Public Use
  Company Number: US-JNJFOC-20120503733

PATIENT
  Sex: Female
  Weight: 68.95 kg

DRUGS (5)
  1. XARELTO [Suspect]
     Indication: THROMBOSIS PROPHYLAXIS
     Route: 048
     Dates: start: 20120215
  2. MORPHINE [Concomitant]
     Indication: PAIN
     Dates: start: 20120215
  3. XARELTO [Suspect]
     Indication: JOINT ARTHROPLASTY
     Route: 048
     Dates: start: 20120215
  4. PERCOCET [Concomitant]
     Indication: PAIN
  5. AMBIEN [Concomitant]
     Indication: INSOMNIA

REACTIONS (1)
  - PULMONARY EMBOLISM [None]
